FAERS Safety Report 11895117 (Version 2)
Quarter: 2017Q1

REPORT INFORMATION
  Report Type: Spontaneous
  Country: US (occurrence: US)
  Receive Date: 20160107
  Receipt Date: 20170224
  Transmission Date: 20170428
  Serious: No
  Sender: FDA-Public Use
  Company Number: US-PFIZER INC-2015442538

PATIENT
  Age: 41 Year
  Sex: Male
  Weight: 113 kg

DRUGS (2)
  1. SOMAVERT [Suspect]
     Active Substance: PEGVISOMANT
     Indication: ACROMEGALY
     Dosage: 30 MG, DAILY (2 VIALS)
     Route: 058
     Dates: start: 201009
  2. SOMAVERT [Suspect]
     Active Substance: PEGVISOMANT
     Indication: GIGANTISM
     Dosage: 30 MG, DAILY
     Route: 058

REACTIONS (3)
  - Incorrect product storage [Recovered/Resolved]
  - Product quality issue [Unknown]
  - Incorrect dose administered [Not Recovered/Not Resolved]

NARRATIVE: CASE EVENT DATE: 2017
